FAERS Safety Report 8850815 (Version 1)
Quarter: 2012Q4

REPORT INFORMATION
  Report Type: 
  Country: DE (occurrence: DE)
  Receive Date: 20121019
  Receipt Date: 20121019
  Transmission Date: 20130627
  Serious: Yes (Disabling)
  Sender: FDA-Public Use
  Company Number: DE-BAYER-2012-106565

PATIENT
  Age: 34 Year
  Sex: Female
  Weight: 59 kg

DRUGS (1)
  1. MIRENA [Suspect]
     Indication: CONTRACEPTION
     Dosage: 20 mcg/24hr, CONT
     Route: 015
     Dates: start: 201104, end: 201207

REACTIONS (4)
  - Autoimmune thyroiditis [None]
  - Libido decreased [Recovering/Resolving]
  - Hyperhidrosis [Recovering/Resolving]
  - Depressed mood [Recovering/Resolving]
